FAERS Safety Report 9155985 (Version 1)
Quarter: 2013Q1

REPORT INFORMATION
  Report Type: Spontaneous
  Country: US (occurrence: US)
  Receive Date: 20130311
  Receipt Date: 20130311
  Transmission Date: 20140127
  Serious: Yes (Other)
  Sender: FDA-Public Use
  Company Number: US-MYLANLABS-2013S1004578

PATIENT
  Age: 25 Year
  Sex: Male
  Weight: 100 kg

DRUGS (7)
  1. KETAMINE [Suspect]
     Indication: SEDATION
     Dosage: 50MG (0.5 MG/KG) OVER 15-20S
     Route: 065
  2. PROPOFOL [Concomitant]
     Indication: SEDATION
     Dosage: 50MG (0.5 MG/KG) OVER 15-20S
     Route: 065
  3. MORPHINE [Concomitant]
     Indication: ANALGESIC THERAPY
     Dosage: 2 X 4MG
     Route: 042
  4. HYDROMORPHONE [Concomitant]
     Indication: ANALGESIC THERAPY
     Dosage: 1MG
     Route: 042
  5. FENTANYL [Concomitant]
     Indication: ANALGESIC THERAPY
     Dosage: 50MICROG
     Route: 042
  6. ONDANSETRON [Concomitant]
     Indication: NAUSEA
     Dosage: 2 X 4MG
     Route: 042
  7. PROMETHAZINE [Concomitant]
     Indication: NAUSEA
     Dosage: 25MG
     Route: 042

REACTIONS (1)
  - Waxy flexibility [Recovered/Resolved]
